FAERS Safety Report 6286976-9 (Version None)
Quarter: 2009Q3

REPORT INFORMATION
  Report Type: 
  Country: None (occurrence: None)
  Receive Date: 20090728
  Receipt Date: 20090715
  Transmission Date: 20100115
  Serious: Yes (Hospitalization)
  Sender: FDA-Public Use
  Company Number: BE-ELI_LILLY_AND_COMPANY-BE200907000120

PATIENT
  Sex: Male
  Weight: 60 kg

DRUGS (9)
  1. PEMETREXED [Suspect]
     Indication: NON-SMALL CELL LUNG CANCER
     Dosage: 500 MG ON DAY 1 EVERY 21 DAYS
     Route: 042
     Dates: start: 20090421
  2. CISPLATIN [Suspect]
     Indication: NON-SMALL CELL LUNG CANCER
     Dosage: 75 MG/M2 ON DAY 1 EVERY 21 DAYS
     Route: 042
     Dates: start: 20090421
  3. FOLIC ACID [Concomitant]
     Indication: PROPHYLAXIS
     Dates: start: 20090416
  4. VITAMIN B-12 [Concomitant]
     Indication: PROPHYLAXIS
     Dates: start: 20090416, end: 20090623
  5. DEXAMETHASONE [Concomitant]
     Indication: PROPHYLAXIS
     Dates: start: 20090622, end: 20090629
  6. PRETERAX [Concomitant]
     Indication: HYPERTENSION
     Dates: start: 20060101
  7. MEDROL [Concomitant]
     Indication: PARANEOPLASTIC SYNDROME
     Dates: start: 20090407
  8. SOTALOL [Concomitant]
     Indication: TACHYCARDIA
     Dates: start: 20090403
  9. DULCOLAX [Concomitant]
     Indication: CONSTIPATION
     Dates: start: 20060421

REACTIONS (1)
  - HAEMOPTYSIS [None]
